FAERS Safety Report 13511829 (Version 1)
Quarter: 2017Q2

REPORT INFORMATION
  Report Type: Spontaneous
  Country: US (occurrence: US)
  Receive Date: 20170503
  Receipt Date: 20170503
  Transmission Date: 20170830
  Serious: Yes (Disabling)
  Sender: FDA-Public Use
  Company Number: None

PATIENT
  Age: 23 Year
  Sex: Female
  Weight: 67.5 kg

DRUGS (14)
  1. ZINC. [Concomitant]
     Active Substance: ZINC
  2. CRANBERRY PILLS [Concomitant]
  3. APPLE CIDER VINEGAR TEA [Concomitant]
  4. VITAMIN E [Concomitant]
     Active Substance: .ALPHA.-TOCOPHEROL
  5. POTASSIUM [Concomitant]
     Active Substance: POTASSIUM
  6. PROBIOTICS [Concomitant]
     Active Substance: PROBIOTICS NOS
  7. FOLATE [Concomitant]
     Active Substance: FOLATE SODIUM
  8. ECHINACEA [Concomitant]
     Active Substance: ECHINACEA, UNSPECIFIED
  9. VALCYLOVIR [Concomitant]
  10. VITAMIN C [Concomitant]
     Active Substance: ASCORBIC ACID
  11. L-LYSINE [Concomitant]
     Active Substance: LYSINE
  12. CIPROFLOXACIN. [Suspect]
     Active Substance: CIPROFLOXACIN
     Indication: URINARY TRACT INFECTION
     Route: 048
     Dates: start: 20170323, end: 20170401
  13. SPRINTEC [Concomitant]
     Active Substance: ETHINYL ESTRADIOL\NORGESTIMATE
  14. VITAMIN B12 [Concomitant]
     Active Substance: CYANOCOBALAMIN

REACTIONS (5)
  - Anxiety [None]
  - Panic attack [None]
  - Hypoaesthesia [None]
  - Dissociation [None]
  - Fatigue [None]

NARRATIVE: CASE EVENT DATE: 20170329
